FAERS Safety Report 7918182-3 (Version None)
Quarter: 2011Q4

REPORT INFORMATION
  Report Type: 
  Country: None (occurrence: None)
  Receive Date: 20111116
  Receipt Date: 20111110
  Transmission Date: 20120403
  Serious: Yes (Hospitalization)
  Sender: FDA-Public Use
  Company Number: US-ACTELION-A-US2011-56977

PATIENT

DRUGS (6)
  1. TRACLEER [Suspect]
     Indication: PULMONARY ARTERIAL HYPERTENSION
     Dosage: UNK
     Route: 048
     Dates: start: 20110811
  2. ANAESTHETICS [Suspect]
  3. COUMADIN [Concomitant]
  4. LASIX [Concomitant]
  5. PERCOCET [Suspect]
  6. HUMIRA [Concomitant]

REACTIONS (2)
  - RENAL FAILURE ACUTE [None]
  - HAEMORRHOID OPERATION [None]
